FAERS Safety Report 14031494 (Version 3)
Quarter: 2025Q1

REPORT INFORMATION
  Report Type: Spontaneous
  Country: US (occurrence: US)
  Receive Date: 20171002
  Receipt Date: 20250319
  Transmission Date: 20250408
  Serious: No
  Sender: MERCK SHARP & DOHME LLC
  Company Number: US-009507513-1709USA014896

PATIENT
  Age: 72 Year
  Sex: Male

DRUGS (4)
  1. BELSOMRA [Suspect]
     Active Substance: SUVOREXANT
     Indication: Insomnia
     Dosage: DOSE DESCRIPTION : 2 TABLETS (20 MG), QD?DAILY DOSE : 20 MILLIGRAM?CONCENTRATION: 10 MILLIGRAM
     Route: 048
     Dates: start: 201509
  2. BELSOMRA [Suspect]
     Active Substance: SUVOREXANT
     Indication: Insomnia
     Dosage: DOSE DESCRIPTION : 1 TABLET AND A HALF (15 MG), QD?DAILY DOSE : 15 MILLIGRAM
     Route: 048
  3. TESTOSTERONE [Concomitant]
     Active Substance: TESTOSTERONE
  4. KLONOPIN [Concomitant]
     Active Substance: CLONAZEPAM

REACTIONS (8)
  - Therapeutic product effect decreased [Unknown]
  - Amnesia [Unknown]
  - Anxiety [Unknown]
  - Feeling abnormal [Unknown]
  - Fatigue [Unknown]
  - Somnolence [Unknown]
  - Wrong technique in product usage process [Unknown]
  - Intentional product misuse [Unknown]

NARRATIVE: CASE EVENT DATE: 20151101
